FAERS Safety Report 4967491-9 (Version None)
Quarter: 2006Q2

REPORT INFORMATION
  Report Type: 
  Country: None (occurrence: None)
  Receive Date: 20060410
  Receipt Date: 20060330
  Transmission Date: 20061013
  Serious: Yes (Hospitalization)
  Sender: FDA-Public Use
  Company Number: PHNU2006DE01527

PATIENT
  Age: 52 Year
  Sex: Female

DRUGS (2)
  1. CO-DIOVAN [Suspect]
     Dates: start: 20040101
  2. PROVAS COMP [Concomitant]
     Dates: start: 20060330

REACTIONS (2)
  - BIPOLAR DISORDER [None]
  - DEPRESSION [None]
